FAERS Safety Report 12921059 (Version 2)
Quarter: 2016Q4

REPORT INFORMATION
  Report Type: Spontaneous
  Country: BR (occurrence: BR)
  Receive Date: 20161107
  Receipt Date: 20161110
  Transmission Date: 20170207
  Serious: Yes (Life-Threatening, Other)
  Sender: FDA-Public Use
  Company Number: BR-BAYER-2016-208879

PATIENT
  Age: 33 Year
  Sex: Female

DRUGS (1)
  1. LEVONORGESTREL. [Suspect]
     Active Substance: LEVONORGESTREL
     Dosage: UNK
     Route: 015

REACTIONS (7)
  - Arteriovenous fistula [Recovered/Resolved]
  - Uterine perforation [Recovered/Resolved]
  - Pelvic haematoma [Recovered/Resolved]
  - Post procedural haemorrhage [Recovered/Resolved]
  - Pelvic fluid collection [Recovered/Resolved]
  - Uterine adhesions [None]
  - Amenorrhoea [None]
